FAERS Safety Report 6765017-0 (Version None)
Quarter: 2010Q2

REPORT INFORMATION
  Report Type: 
  Country: None (occurrence: None)
  Receive Date: 20100609
  Receipt Date: 20100507
  Transmission Date: 20101027
  Serious: No
  Sender: FDA-Public Use
  Company Number: 2010010986

PATIENT
  Age: 1 Year
  Sex: Male

DRUGS (3)
  1. CHILDREN'S ZYRTEC ALLERGY [Suspect]
     Indication: FOOD ALLERGY
     Dosage: 1/2 TEASPOONFUL UP TO TWICE  DAILY ORAL
     Route: 048
  2. MULTI-VITAMINS [Concomitant]
  3. CALCIUM (CALCIUM) [Concomitant]

REACTIONS (3)
  - OFF LABEL USE [None]
  - PRODUCT QUALITY ISSUE [None]
  - WRONG DRUG ADMINISTERED [None]
